FAERS Safety Report 7159114-8 (Version None)
Quarter: 2010Q4

REPORT INFORMATION
  Report Type: 
  Country: None (occurrence: None)
  Receive Date: 20101130
  Receipt Date: 20101119
  Transmission Date: 20110411
  Serious: Yes (Hospitalization)
  Sender: FDA-Public Use
  Company Number: 2010SP045220

PATIENT
  Age: 14 Year
  Sex: Female
  Weight: 47.5 kg

DRUGS (3)
  1. ROCURONIUM BROMIDE [Suspect]
     Indication: NEUROMUSCULAR BLOCKING THERAPY
     Dosage: 50 MG;ONCE;IV
     Route: 042
     Dates: start: 20100812, end: 20100812
  2. PROPOFOL [Suspect]
     Indication: SEDATIVE THERAPY
     Dosage: IV
     Route: 042
     Dates: start: 20100812, end: 20100812
  3. SEVOFLURANE [Concomitant]

REACTIONS (5)
  - ANAPHYLACTIC REACTION [None]
  - HISTAMINE LEVEL INCREASED [None]
  - HYPOTENSION [None]
  - SKIN TEST POSITIVE [None]
  - TACHYCARDIA [None]
